FAERS Safety Report 19456561 (Version 1)
Quarter: 2021Q2

REPORT INFORMATION
  Report Type: Spontaneous
  Country: US (occurrence: US)
  Receive Date: 20210624
  Receipt Date: 20210624
  Transmission Date: 20210717
  Serious: Yes (Other)
  Sender: FDA-Public Use
  Company Number: None

PATIENT
  Age: 9 Month
  Sex: Female

DRUGS (7)
  1. LEVETIRACETA SOL [Concomitant]
     Dates: start: 20210330
  2. DIAZEPAM GEL [Concomitant]
     Active Substance: DIAZEPAM
     Dates: start: 20210331
  3. CLOBAZAM. [Concomitant]
     Active Substance: CLOBAZAM
     Dates: start: 20210304
  4. PHENOBARB [Concomitant]
     Active Substance: PHENOBARBITAL SODIUM
     Dates: start: 20210401
  5. VIMPAT [Concomitant]
     Active Substance: LACOSAMIDE
     Dates: start: 20210509
  6. VIGABATRIN  POWDER [Suspect]
     Active Substance: VIGABATRIN
     Indication: PRODUCT USED FOR UNKNOWN INDICATION
     Route: 048
     Dates: start: 20210527
  7. TOPIRAMATE. [Concomitant]
     Active Substance: TOPIRAMATE
     Dates: start: 20210330

REACTIONS (2)
  - Pyrexia [None]
  - Productive cough [None]

NARRATIVE: CASE EVENT DATE: 20210617
